FAERS Safety Report 4620623-4 (Version None)
Quarter: 2005Q1

REPORT INFORMATION
  Report Type: 
  Country: None (occurrence: None)
  Receive Date: 20050324
  Receipt Date: 20050309
  Transmission Date: 20050727
  Serious: Yes (Life-Threatening)
  Sender: FDA-Public Use
  Company Number: 2005-DE-00947GD

PATIENT
  Age: 46 Year
  Sex: Female

DRUGS (4)
  1. MEXETIL (MEXILETINE HYDROCHLORIDE) (MEXILETINE-HCL) [Suspect]
     Indication: VENTRICULAR TACHYCARDIA
  2. NICORANDIL (NICORANDIL) [Suspect]
     Indication: VENTRICULAR TACHYCARDIA
  3. NADOLOL [Suspect]
     Indication: VENTRICULAR TACHYCARDIA
  4. AMILORIDE HCL [Concomitant]

REACTIONS (8)
  - CORONARY ARTERY DISSECTION [None]
  - DRUG INEFFECTIVE [None]
  - ELECTROCARDIOGRAM QT CORRECTED INTERVAL PROLONGED [None]
  - ELECTROCARDIOGRAM ST-T SEGMENT ABNORMAL [None]
  - HYPOKALAEMIA [None]
  - PROCEDURAL COMPLICATION [None]
  - SYNCOPE [None]
  - VENTRICULAR TACHYCARDIA [None]
